FAERS Safety Report 23911138 (Version 2)
Quarter: 2024Q2

REPORT INFORMATION
  Report Type: Other
  Country: US (occurrence: US)
  Receive Date: 20240528
  Receipt Date: 20240621
  Transmission Date: 20240716
  Serious: Yes (Other)
  Sender: FDA-Public Use
  Company Number: US-TRAVERE-2024TVT00516

PATIENT
  Age: 68 Year
  Sex: Female
  Weight: 78.02 kg

DRUGS (21)
  1. FILSPARI [Suspect]
     Active Substance: SPARSENTAN
     Indication: IgA nephropathy
     Dosage: TAKE 1 TABLET ONCE DAILY ON DAYS 1 THROUGH 14, THEN TAKE 2 TABLETS ONCE DAILY ON DAYS 15 THROUGH 30.
     Route: 048
     Dates: start: 20240501
  2. MONTELUKAST SODIUM [Concomitant]
     Active Substance: MONTELUKAST SODIUM
  3. ALENDRONATE SODIUM [Concomitant]
     Active Substance: ALENDRONATE SODIUM
  4. JARDIANCE [Concomitant]
     Active Substance: EMPAGLIFLOZIN
  5. NEBIVOLOL [Concomitant]
     Active Substance: NEBIVOLOL
  6. NIFEDIPINE [Concomitant]
     Active Substance: NIFEDIPINE
  7. HYDRALAZINE HCL [Concomitant]
     Active Substance: HYDRALAZINE HYDROCHLORIDE
  8. EZETIMIBE [Concomitant]
     Active Substance: EZETIMIBE
  9. FUROSEMIDE [Concomitant]
     Active Substance: FUROSEMIDE
  10. CALCIUM ACETATE [Concomitant]
     Active Substance: CALCIUM ACETATE
  11. ATORVASTATIN CALCIUM [Concomitant]
     Active Substance: ATORVASTATIN CALCIUM
  12. PANTOPRAZOLE SODIUM [Concomitant]
     Active Substance: PANTOPRAZOLE SODIUM
  13. BYSTOLIC [Concomitant]
     Active Substance: NEBIVOLOL HYDROCHLORIDE
  14. PROTONIX [Concomitant]
     Active Substance: PANTOPRAZOLE SODIUM
  15. FAMOTIDINE [Concomitant]
     Active Substance: FAMOTIDINE
  16. CALCIUM [Concomitant]
     Active Substance: CALCIUM
  17. PROAIR HFA [Concomitant]
     Active Substance: ALBUTEROL SULFATE
  18. LIPITOR [Concomitant]
     Active Substance: ATORVASTATIN CALCIUM
  19. LEVOTHYROXINE SODIUM [Concomitant]
     Active Substance: LEVOTHYROXINE SODIUM
  20. EMPAGLIFLOZIN [Concomitant]
     Active Substance: EMPAGLIFLOZIN
  21. Womens one daily [Concomitant]

REACTIONS (3)
  - Diverticulitis [Unknown]
  - Fatigue [Unknown]
  - Weight decreased [Unknown]
